FAERS Safety Report 4303087-X (Version None)
Quarter: 2004Q1

REPORT INFORMATION
  Report Type: 
  Country: None (occurrence: None)
  Receive Date: 20040126
  Receipt Date: 20030929
  Transmission Date: 20041129
  Serious: No
  Sender: FDA-Public Use
  Company Number: USA030948527

PATIENT
  Age: 40 Year
  Sex: Female

DRUGS (4)
  1. STRATTERA [Suspect]
     Dosage: 80 MG/DAY
     Dates: start: 20030901
  2. PAXIL [Concomitant]
  3. PSEUDOEPHEDRINE HCL [Concomitant]
  4. CLARITIN [Concomitant]

REACTIONS (1)
  - DYSPNOEA [None]
